FAERS Safety Report 10757585 (Version 5)
Quarter: 2020Q1

REPORT INFORMATION
  Report Type: Spontaneous
  Country: US (occurrence: US)
  Receive Date: 20150203
  Receipt Date: 20200110
  Transmission Date: 20200409
  Serious: Yes (Hospitalization)
  Sender: FDA-Public Use
  Company Number: US-UCBSA-2015002341

PATIENT
  Age: 22 Year
  Sex: Male
  Weight: 86.2 kg

DRUGS (2)
  1. 6-MP [Concomitant]
     Active Substance: MERCAPTOPURINE
     Indication: CROHN^S DISEASE
     Dosage: DAILY
     Route: 048
  2. CIMZIA [Suspect]
     Active Substance: CERTOLIZUMAB PEGOL
     Indication: CROHN^S DISEASE
     Dosage: 400 MG, EV 4 WEEKS
     Route: 058
     Dates: start: 20140915, end: 201411

REACTIONS (3)
  - Crohn^s disease [Recovered/Resolved]
  - Drug ineffective [Unknown]
  - Abscess [Recovered/Resolved]

NARRATIVE: CASE EVENT DATE: 20140916
